FAERS Safety Report 8249730-4 (Version None)
Quarter: 2012Q2

REPORT INFORMATION
  Report Type: 
  Country: None (occurrence: None)
  Receive Date: 20120402
  Receipt Date: 20120321
  Transmission Date: 20120825
  Serious: Yes (Other)
  Sender: FDA-Public Use
  Company Number: RU-BRISTOL-MYERS SQUIBB COMPANY-16471997

PATIENT
  Sex: Female

DRUGS (3)
  1. EFAVIRENZ [Suspect]
  2. STAVUDINE [Suspect]
  3. DIDANOSINE [Suspect]
     Route: 048

REACTIONS (5)
  - POLYNEUROPATHY [None]
  - PAIN IN EXTREMITY [None]
  - ASTHENIA [None]
  - MYELOPATHY [None]
  - ARTHROPATHY [None]
